FAERS Safety Report 9661943 (Version 3)
Quarter: 2013Q4

REPORT INFORMATION
  Report Type: Spontaneous
  Country: FR (occurrence: None)
  Receive Date: 20131030
  Receipt Date: 20131219
  Transmission Date: 20140711
  Serious: Yes (Death, Hospitalization, Other)
  Sender: FDA-Public Use
  Company Number: 2013FR002759

PATIENT
  Age: 66 Year
  Sex: Male

DRUGS (1)
  1. PONATINIB (AP24534) TABLET [Suspect]
     Indication: ACUTE LYMPHOCYTIC LEUKAEMIA
     Route: 048
     Dates: start: 20120811

REACTIONS (6)
  - Nervous system disorder [None]
  - Deafness [None]
  - Fatigue [None]
  - Leukaemia [None]
  - Cerebral disorder [None]
  - Somnolence [None]
